FAERS Safety Report 10667726 (Version 6)
Quarter: 2015Q2

REPORT INFORMATION
  Report Type: Report from Study
  Country: US (occurrence: US)
  Receive Date: 20141222
  Receipt Date: 20150629
  Transmission Date: 20150821
  Serious: Yes (Disabling, Other)
  Sender: FDA-Public Use
  Company Number: US-ACTELION-A-US2014-109850

PATIENT
  Age: 80 Year
  Sex: Female

DRUGS (5)
  1. COUMADIN [Concomitant]
     Active Substance: WARFARIN SODIUM
  2. OXYGEN. [Concomitant]
     Active Substance: OXYGEN
     Dosage: 4 L/MIN, UNK
  3. TYVASO [Concomitant]
     Active Substance: TREPROSTINIL
     Dosage: 3 BREATHS, QID
     Dates: start: 20100720
  4. TRACLEER [Suspect]
     Active Substance: BOSENTAN\BOSENTAN MONOHYDRATE
     Indication: PULMONARY ARTERIAL HYPERTENSION
     Dosage: 125 MG, BID
     Route: 048
     Dates: start: 20120928
  5. RIOCIGUAT [Concomitant]
     Active Substance: RIOCIGUAT
     Dosage: 2 MG, TID
     Dates: start: 20140724

REACTIONS (7)
  - Headache [Unknown]
  - Heart rate increased [Unknown]
  - Dyspnoea [Unknown]
  - Epistaxis [Unknown]
  - Benign lung neoplasm [Unknown]
  - Asthenia [Unknown]
  - Fatigue [Unknown]

NARRATIVE: CASE EVENT DATE: 20150113
